FAERS Safety Report 8901905 (Version 1)
Quarter: 2012Q4

REPORT INFORMATION
  Report Type: Spontaneous
  Country: US (occurrence: None)
  Receive Date: 20121109
  Receipt Date: 20121109
  Transmission Date: 20130627
  Serious: Yes (Hospitalization)
  Sender: FDA-Public Use
  Company Number: None

PATIENT
  Age: 77 Year
  Sex: Male
  Weight: 89.1 kg

DRUGS (1)
  1. WARFARIN [Suspect]
     Indication: AFIB
     Dosage: 2 MG EVERY DAY PO
     Route: 048
     Dates: start: 20120329

REACTIONS (4)
  - Haematuria [None]
  - Abdominal pain [None]
  - International normalised ratio increased [None]
  - Bladder neoplasm [None]
